FAERS Safety Report 13541459 (Version 2)
Quarter: 2017Q2

REPORT INFORMATION
  Report Type: Spontaneous
  Country: US (occurrence: US)
  Receive Date: 20170512
  Receipt Date: 20170530
  Transmission Date: 20170830
  Serious: No
  Sender: FDA-Public Use
  Company Number: US-PFIZER INC-2017204276

PATIENT
  Sex: Female

DRUGS (4)
  1. EUCRISA [Suspect]
     Active Substance: CRISABOROLE
     Indication: DERMATITIS
     Dosage: UNK, 2X/WEEK
  2. EUCRISA [Suspect]
     Active Substance: CRISABOROLE
     Indication: CHAPPED LIPS
  3. EUCRISA [Suspect]
     Active Substance: CRISABOROLE
     Indication: EYELID MARGIN CRUSTING
  4. CORTISONE [Concomitant]
     Active Substance: CORTISONE\HYDROCORTISONE
     Dosage: UNK

REACTIONS (3)
  - Application site pain [Unknown]
  - Stomatitis [Unknown]
  - Blepharitis [Unknown]
